FAERS Safety Report 12328182 (Version 1)
Quarter: 2016Q2

REPORT INFORMATION
  Report Type: Spontaneous
  Country: US (occurrence: US)
  Receive Date: 20160503
  Receipt Date: 20160503
  Transmission Date: 20160815
  Serious: No
  Sender: FDA-Public Use
  Company Number: US-PERRIGO-15US005333

PATIENT
  Age: 52 Year
  Sex: Female
  Weight: 77.98 kg

DRUGS (4)
  1. NAPROXEN SODIUM-PSEUDOEPHEDRINE HYDROCHLORIDE [Suspect]
     Active Substance: NAPROXEN SODIUM\PSEUDOEPHEDRINE HYDROCHLORIDE
     Indication: HEADACHE
     Dosage: 1/4 TO 1/2 TABLET, QD
     Route: 048
     Dates: start: 20150506, end: 20150518
  2. LEVOTHYROXINE. [Concomitant]
     Active Substance: LEVOTHYROXINE
     Indication: THYROIDECTOMY
     Dosage: 0.125 MCG, QD
     Route: 048
  3. NAPROXEN SODIUM-PSEUDOEPHEDRINE HYDROCHLORIDE [Suspect]
     Active Substance: NAPROXEN SODIUM\PSEUDOEPHEDRINE HYDROCHLORIDE
     Indication: SINUS DISORDER
     Dosage: 1 TABLET, QD
     Route: 048
     Dates: start: 20150504, end: 20150505
  4. PRAVASTATIN SODIUM. [Concomitant]
     Active Substance: PRAVASTATIN SODIUM
     Indication: BLOOD CHOLESTEROL INCREASED
     Dosage: 20 MG, QD
     Route: 048
     Dates: start: 201501

REACTIONS (7)
  - Pain [Unknown]
  - Incorrect drug administration duration [Recovered/Resolved]
  - Incorrect dose administered [Recovered/Resolved]
  - Back pain [Unknown]
  - Dizziness [Unknown]
  - Flank pain [Unknown]
  - Wrong technique in product usage process [Recovered/Resolved]

NARRATIVE: CASE EVENT DATE: 201505
